FAERS Safety Report 23278156 (Version 5)
Quarter: 2024Q2

REPORT INFORMATION
  Report Type: Report from Study
  Country: US (occurrence: US)
  Receive Date: 20231208
  Receipt Date: 20240612
  Transmission Date: 20240715
  Serious: Yes (Hospitalization, Other)
  Sender: FDA-Public Use
  Company Number: US-ARGENX-2023-ARGX-US002946

PATIENT

DRUGS (6)
  1. VYVGART [Suspect]
     Active Substance: EFGARTIGIMOD ALFA-FCAB
     Indication: Myasthenia gravis
     Dosage: 10 MG/KG
     Route: 042
     Dates: start: 202308, end: 2023
  2. VYVGART [Suspect]
     Active Substance: EFGARTIGIMOD ALFA-FCAB
     Dosage: UNK
     Route: 042
  3. VYVGART HYTRULO [Suspect]
     Active Substance: EFGARTIGIMOD ALFA\HYALURONIDASE-QVFC
     Indication: Myasthenia gravis
     Dosage: UNK
     Route: 058
     Dates: start: 20231025
  4. PREDNISONE [Suspect]
     Active Substance: PREDNISONE
     Indication: Product used for unknown indication
     Dosage: UNK
     Route: 065
  5. SEROQUEL [Concomitant]
     Active Substance: QUETIAPINE FUMARATE
     Indication: Mental disorder
     Dosage: UNK
     Route: 065
  6. LAMICTAL [Concomitant]
     Active Substance: LAMOTRIGINE
     Indication: Mental disorder
     Dosage: UNK
     Route: 065

REACTIONS (30)
  - Mental disorder [Unknown]
  - Supraventricular tachycardia [Unknown]
  - Myasthenia gravis crisis [Not Recovered/Not Resolved]
  - Homicidal ideation [Unknown]
  - Myasthenia gravis [Unknown]
  - Myasthenia gravis [Unknown]
  - Poor venous access [Unknown]
  - Diplopia [Unknown]
  - Eyelid ptosis [Unknown]
  - Muscular weakness [Unknown]
  - Fatigue [Unknown]
  - Peripheral swelling [Unknown]
  - Swelling [Unknown]
  - Micturition urgency [Unknown]
  - Pollakiuria [Unknown]
  - Urinary incontinence [Unknown]
  - Diarrhoea [Unknown]
  - Cough [Unknown]
  - Muscular weakness [Unknown]
  - Nausea [Unknown]
  - Nasopharyngitis [Unknown]
  - Fall [Unknown]
  - Head injury [Unknown]
  - Ligament sprain [Unknown]
  - Face injury [Unknown]
  - Depression [Unknown]
  - Muscle twitching [Recovered/Resolved]
  - Nystagmus [Unknown]
  - Urinary tract infection [Unknown]
  - Procedural headache [Recovered/Resolved]

NARRATIVE: CASE EVENT DATE: 20240101
